FAERS Safety Report 13026930 (Version 2)
Quarter: 2017Q1

REPORT INFORMATION
  Report Type: Spontaneous
  Country: BE (occurrence: BE)
  Receive Date: 20161214
  Receipt Date: 20170124
  Transmission Date: 20170428
  Serious: Yes (Hospitalization)
  Sender: FDA-Public Use
  Company Number: BE-TEVA-720522ROM

PATIENT
  Age: 61 Year
  Sex: Female
  Weight: 52.5 kg

DRUGS (12)
  1. MITOXANTRONE [Suspect]
     Active Substance: MITOXANTRONE HYDROCHLORIDE
     Route: 042
     Dates: start: 2000, end: 2000
  2. ESCITALOPRAM [Concomitant]
     Active Substance: ESCITALOPRAM OXALATE
     Indication: DEPRESSION
     Route: 048
     Dates: start: 1998
  3. ACLASTA [Concomitant]
     Active Substance: ZOLEDRONIC ACID
     Indication: OSTEOPOROSIS
     Dates: start: 2010
  4. BACLOFEN. [Concomitant]
     Active Substance: BACLOFEN
     Indication: MUSCLE SPASTICITY
     Dosage: 10 MILLIGRAM DAILY;
     Route: 048
     Dates: start: 1997, end: 1997
  5. MITOXANTRONE [Suspect]
     Active Substance: MITOXANTRONE HYDROCHLORIDE
     Indication: MULTIPLE SCLEROSIS
     Route: 042
     Dates: start: 1998, end: 1998
  6. LORMETAZEPAM [Concomitant]
     Active Substance: LORMETAZEPAM
     Indication: INSOMNIA
     Route: 048
     Dates: start: 1998
  7. SINTROM [Concomitant]
     Active Substance: ACENOCOUMAROL
     Indication: THROMBOSIS PROPHYLAXIS
     Route: 048
     Dates: start: 2003
  8. PANTOMED [Concomitant]
     Active Substance: DEXPANTHENOL
     Indication: GASTROINTESTINAL DISORDER
     Route: 048
     Dates: start: 2012
  9. BACLOFEN. [Concomitant]
     Active Substance: BACLOFEN
     Dosage: 25 MILLIGRAM DAILY;
     Route: 048
     Dates: start: 1997, end: 1997
  10. MEBEVERINE [Concomitant]
     Active Substance: MEBEVERINE
     Route: 048
     Dates: start: 2014
  11. COPAXONE [Suspect]
     Active Substance: GLATIRAMER ACETATE
     Indication: MULTIPLE SCLEROSIS
     Dosage: 20 MILLIGRAM/MILLILITERS DAILY;
     Route: 058
     Dates: start: 2005, end: 20161018
  12. MEBEVERINE [Concomitant]
     Active Substance: MEBEVERINE
     Indication: MUSCLE SPASMS
     Route: 048
     Dates: start: 2014

REACTIONS (2)
  - Gastrointestinal disorder [Not Recovered/Not Resolved]
  - Mantle cell lymphoma [Unknown]

NARRATIVE: CASE EVENT DATE: 201507
